FAERS Safety Report 5580297-5 (Version None)
Quarter: 2008Q1

REPORT INFORMATION
  Report Type: 
  Country: None (occurrence: None)
  Receive Date: 20080103
  Receipt Date: 20071221
  Transmission Date: 20080703
  Serious: Yes (Other)
  Sender: FDA-Public Use
  Company Number: IT-SOLVAY-00207035586

PATIENT
  Age: 12340 Day
  Sex: Female

DRUGS (1)
  1. PROMETRIUM [Suspect]
     Indication: HABITUAL ABORTION
     Dosage: DAILY DOSE: 200 MILLIGRAM(S)
     Route: 067
     Dates: start: 20071109, end: 20071119

REACTIONS (1)
  - VITREOUS DETACHMENT [None]
